FAERS Safety Report 13669666 (Version 1)
Quarter: 2017Q2

REPORT INFORMATION
  Report Type: Report from Study
  Country: CA (occurrence: CA)
  Receive Date: 20170620
  Receipt Date: 20170620
  Transmission Date: 20170830
  Serious: Yes (Other)
  Sender: FDA-Public Use
  Company Number: CA-AMGEN-CANSL2017091629

PATIENT
  Age: 87 Year
  Sex: Female

DRUGS (2)
  1. PROLIA [Suspect]
     Active Substance: DENOSUMAB
     Indication: PRODUCT USED FOR UNKNOWN INDICATION
     Dosage: UNK
     Route: 065
     Dates: start: 20120222
  2. CALCIUM [Concomitant]
     Active Substance: CALCIUM
     Dosage: UNK

REACTIONS (8)
  - Dysphagia [Unknown]
  - Tooth disorder [Unknown]
  - Musculoskeletal chest pain [Not Recovered/Not Resolved]
  - Arrhythmia [Unknown]
  - Oropharyngeal pain [Unknown]
  - Road traffic accident [Unknown]
  - Gastrointestinal motility disorder [Unknown]
  - Back pain [Not Recovered/Not Resolved]
